FAERS Safety Report 5029158-0 (Version None)
Quarter: 2006Q2

REPORT INFORMATION
  Report Type: 
  Country: None (occurrence: None)
  Receive Date: 20060619
  Receipt Date: 20060607
  Transmission Date: 20061013
  Serious: Yes (Hospitalization)
  Sender: FDA-Public Use
  Company Number: 2006GB00981

PATIENT
  Age: 68 Year
  Sex: Male

DRUGS (3)
  1. CASODEX [Suspect]
     Route: 048
  2. DI-CODRAMOL [Concomitant]
     Indication: BACK PAIN
     Route: 048
  3. DI-CODRAMOL [Concomitant]
     Indication: METASTATIC NEOPLASM
     Route: 048

REACTIONS (3)
  - DYSPNOEA [None]
  - SWELLING FACE [None]
  - SWOLLEN TONGUE [None]
